FAERS Safety Report 9733642 (Version 2)
Quarter: 2020Q3

REPORT INFORMATION
  Report Type: Spontaneous
  Country: AU (occurrence: AU)
  Receive Date: 20131205
  Receipt Date: 20131205
  Transmission Date: 20201104
  Serious: Yes (Hospitalization)
  Sender: FDA-Public Use
  Company Number: AU-ASTRAZENECA-2013SE87014

PATIENT
  Age: 3962 Day
  Sex: Female

DRUGS (8)
  1. PROPOFOL. [Suspect]
     Active Substance: PROPOFOL
     Route: 042
  2. MIDAZOLAM HYDROCHLORIDE. [Suspect]
     Active Substance: MIDAZOLAM HYDROCHLORIDE
     Route: 042
  3. PARECOXIB SODIUM. [Suspect]
     Active Substance: PARECOXIB SODIUM
     Route: 042
  4. FENTANYL. [Suspect]
     Active Substance: FENTANYL
     Route: 042
  5. DEXAMETHASONE. [Suspect]
     Active Substance: DEXAMETHASONE
     Route: 042
  6. FLUCLOXACILLIN [Concomitant]
     Active Substance: FLUCLOXACILLIN
     Dosage: 3/7
     Route: 042
  7. FENTANYL. [Suspect]
     Active Substance: FENTANYL
     Route: 042
  8. MORPHINE [Suspect]
     Active Substance: MORPHINE
     Route: 042

REACTIONS (5)
  - Screaming [Recovered/Resolved]
  - Flushing [Recovered/Resolved]
  - Chest pain [Recovered/Resolved]
  - Urticaria [Recovered/Resolved]
  - Hypersensitivity [Recovered/Resolved]

NARRATIVE: CASE EVENT DATE: 20131003
